FAERS Safety Report 8179685 (Version 2)
Quarter: 2013Q1

REPORT INFORMATION
  Report Type: Report from Study
  Country: GB (occurrence: GB)
  Receive Date: 20111013
  Receipt Date: 20130222
  Transmission Date: 20140127
  Serious: Yes (Death, Life-Threatening)
  Sender: FDA-Public Use
  Company Number: GB-GLAXOSMITHKLINE-B0719893A

PATIENT
  Age: 77 Year
  Sex: Male
  Weight: 66.6 kg

DRUGS (20)
  1. MELPHALAN [Suspect]
     Indication: PLASMA CELL MYELOMA
     Dosage: 18MG PER DAY
     Route: 065
     Dates: start: 20090204, end: 20090916
  2. THALIDOMIDE [Suspect]
     Indication: PLASMA CELL MYELOMA
     Dosage: 100MG PER DAY
     Route: 048
     Dates: start: 20090204, end: 20090916
  3. PREDNISONE [Suspect]
     Indication: PLASMA CELL MYELOMA
     Dates: start: 20090204, end: 20090916
  4. VELCADE [Suspect]
     Indication: PLASMA CELL MYELOMA RECURRENT
     Dosage: .1429MG PER DAY
     Dates: start: 20100908, end: 20101124
  5. DEXAMETHASONE [Suspect]
     Indication: PLASMA CELL MYELOMA RECURRENT
     Dosage: 20MG PER DAY
     Route: 065
     Dates: start: 20100908, end: 20101124
  6. PREDNISOLONE [Concomitant]
     Indication: PLASMA CELL MYELOMA
     Dates: start: 20090916, end: 20091111
  7. HYDROXOCOBALAMIN [Concomitant]
     Indication: VITAMIN B12 DEFICIENCY
     Route: 058
     Dates: start: 20080819
  8. ZOLEDRONATE [Concomitant]
     Indication: OSTEOLYSIS
     Dosage: .1333MG MONTHLY
     Route: 042
     Dates: start: 20080312
  9. COCODAMOL [Concomitant]
     Indication: PAIN
     Route: 048
  10. CLEXANE [Concomitant]
     Indication: THROMBOSIS PROPHYLAXIS
     Route: 058
     Dates: start: 20090204
  11. DOMPERIDONE [Concomitant]
     Indication: PROPHYLAXIS
     Route: 048
     Dates: start: 20090204
  12. OMEPRAZOLE [Concomitant]
     Indication: GASTRITIS PROPHYLAXIS
     Dosage: 40MG TWICE PER DAY
     Route: 048
     Dates: start: 20090204
  13. SENNA [Concomitant]
     Indication: CONSTIPATION
     Route: 048
     Dates: start: 20090303
  14. ADCAL [Concomitant]
     Indication: PROPHYLAXIS
     Route: 048
     Dates: start: 20081203
  15. GCSF [Concomitant]
     Indication: NEUTROPENIA
     Dosage: 75.1529UG TWO TIMES PER WEEK
     Route: 048
     Dates: start: 20090930
  16. PENTAMIDINE [Concomitant]
     Indication: PROPHYLAXIS
     Dosage: 10MG MONTHLY
     Route: 055
     Dates: start: 20090318
  17. SALBUTAMOL [Concomitant]
     Indication: PROPHYLAXIS
     Dosage: .0833MG MONTHLY
     Route: 055
     Dates: start: 20090318
  18. MAGNESIUM HYDROXIDE [Concomitant]
     Indication: CONSTIPATION
     Dosage: 20ML TWICE PER DAY
     Route: 048
     Dates: start: 20090408
  19. MOVICOL [Concomitant]
     Indication: CONSTIPATION
     Route: 048
     Dates: start: 20090408
  20. IBUGEL [Concomitant]
     Indication: ARTHRITIS
     Route: 061
     Dates: start: 20090804

REACTIONS (2)
  - Acute myeloid leukaemia [Not Recovered/Not Resolved]
  - Neutropenic sepsis [Fatal]
